FAERS Safety Report 8775582 (Version 3)
Quarter: 2013Q3

REPORT INFORMATION
  Report Type: Spontaneous
  Country: US (occurrence: US)
  Receive Date: 20120907
  Receipt Date: 20130702
  Transmission Date: 20140515
  Serious: Yes (Disabling, Other)
  Sender: FDA-Public Use
  Company Number: CHPA2012US019390

PATIENT
  Age: 74 Year
  Sex: Female

DRUGS (1)
  1. VOLTAREN GEL [Suspect]
     Indication: PAIN IN EXTREMITY
     Dosage: A DAB, UNK
     Route: 061
     Dates: start: 201203

REACTIONS (7)
  - Abasia [Recovered/Resolved]
  - Haematoma [Recovered/Resolved]
  - Joint injury [Recovered/Resolved]
  - Fall [Recovered/Resolved]
  - Therapeutic response unexpected [Unknown]
  - Off label use [Unknown]
  - Wrong technique in drug usage process [Unknown]
